FAERS Safety Report 20646798 (Version 3)
Quarter: 2022Q3

REPORT INFORMATION
  Report Type: Report from Study
  Country: US (occurrence: US)
  Receive Date: 20220329
  Receipt Date: 20220725
  Transmission Date: 20221027
  Serious: No
  Sender: FDA-Public Use
  Company Number: US-SUNOVION-2022SUN000900

PATIENT
  Age: 49 Year
  Sex: Male

DRUGS (3)
  1. KYNMOBI [Suspect]
     Active Substance: APOMORPHINE HYDROCHLORIDE
     Indication: Parkinson^s disease
     Dosage: 20 MG
     Route: 060
     Dates: start: 20220319
  2. KYNMOBI [Suspect]
     Active Substance: APOMORPHINE HYDROCHLORIDE
     Dosage: 25 MG
     Route: 060
     Dates: start: 20220327
  3. KYNMOBI [Suspect]
     Active Substance: APOMORPHINE HYDROCHLORIDE
     Dosage: UNKNOWN
     Route: 060
     Dates: start: 20220327

REACTIONS (4)
  - Parosmia [Unknown]
  - Nausea [Unknown]
  - Vomiting [Unknown]
  - Wrong technique in product usage process [Unknown]

NARRATIVE: CASE EVENT DATE: 20220319
